FAERS Safety Report 21377118 (Version 5)
Quarter: 2022Q4

REPORT INFORMATION
  Report Type: Report from Study
  Country: JP (occurrence: JP)
  Receive Date: 20220926
  Receipt Date: 20221201
  Transmission Date: 20230112
  Serious: Yes (Hospitalization)
  Sender: FDA-Public Use
  Company Number: JP-PFIZER INC-PV202200067471

PATIENT
  Age: 77 Year
  Sex: Male
  Weight: 67 kg

DRUGS (14)
  1. NIRMATRELVIR\RITONAVIR [Suspect]
     Active Substance: NIRMATRELVIR\RITONAVIR
     Indication: COVID-19
     Dosage: [PF-07321332 150 MG]/[RITONAVIR 100 MG]; 2X/DAY
     Dates: start: 20220801, end: 20220801
  2. MIYA-BM [Concomitant]
     Active Substance: CLOSTRIDIUM BUTYRICUM SPORES STRAIN M-55
     Indication: Disease complication
     Dosage: UNK
     Route: 048
  3. LIMAPROST [Concomitant]
     Active Substance: LIMAPROST
     Indication: Disease complication
     Dosage: UNK
     Route: 048
  4. METFORMIN [Concomitant]
     Active Substance: METFORMIN HYDROCHLORIDE
     Indication: Disease complication
     Dosage: UNK
     Route: 048
  5. SILODOSIN [Concomitant]
     Active Substance: SILODOSIN
     Indication: Disease complication
     Dosage: UNK
     Route: 048
  6. TELMISARTAN [Concomitant]
     Active Substance: TELMISARTAN
     Indication: Disease complication
     Dosage: UNK
     Route: 048
  7. ASPIRIN [Concomitant]
     Active Substance: ASPIRIN
     Indication: Disease complication
     Dosage: UNK
     Route: 048
  8. RABEPRAZOLE SODIUM [Concomitant]
     Active Substance: RABEPRAZOLE SODIUM
     Indication: Disease complication
     Dosage: UNK
     Route: 048
  9. PRASUGREL HYDROCHLORIDE [Concomitant]
     Active Substance: PRASUGREL HYDROCHLORIDE
     Indication: Disease complication
     Dosage: UNK
     Route: 048
  10. DOXAZOSIN [Concomitant]
     Active Substance: DOXAZOSIN MESYLATE
     Indication: Disease complication
     Dosage: UNK
     Route: 048
  11. AMLODIPINE [Concomitant]
     Active Substance: AMLODIPINE BESYLATE
     Indication: Disease complication
     Dosage: UNK
     Route: 048
  12. MAGNESIUM OXIDE [Concomitant]
     Active Substance: MAGNESIUM OXIDE
     Indication: Disease complication
     Dosage: UNK
     Route: 048
  13. CALONAL [Concomitant]
     Active Substance: ACETAMINOPHEN
     Indication: Antipyresis
     Dosage: UNK
     Route: 048
     Dates: start: 20220801
  14. CALONAL [Concomitant]
     Active Substance: ACETAMINOPHEN
     Indication: COVID-19

REACTIONS (2)
  - Respiration abnormal [Unknown]
  - Incorrect dose administered [Unknown]

NARRATIVE: CASE EVENT DATE: 20220801
